FAERS Safety Report 10153669 (Version 5)
Quarter: 2014Q2

REPORT INFORMATION
  Report Type: Report from Study
  Country: CA (occurrence: CA)
  Receive Date: 20140506
  Receipt Date: 20140624
  Transmission Date: 20141212
  Serious: Yes (Other)
  Sender: FDA-Public Use
  Company Number: CA-ROCHE-1105828

PATIENT
  Age: 62 Year
  Sex: Female
  Weight: 92 kg

DRUGS (16)
  1. ACTEMRA [Suspect]
     Indication: RHEUMATOID ARTHRITIS
     Dosage: DATE OF LAST DOSE: 03/APR/2014
     Route: 042
     Dates: start: 20100930
  2. ACTEMRA [Suspect]
     Route: 042
     Dates: start: 20110524
  3. CIPROFLOXACIN [Suspect]
     Indication: LUNG INFECTION
     Route: 065
     Dates: start: 201401, end: 201401
  4. LIPITOR [Suspect]
     Indication: PRODUCT USED FOR UNKNOWN INDICATION
     Route: 048
  5. RYTHMOL [Suspect]
     Indication: PRODUCT USED FOR UNKNOWN INDICATION
     Route: 065
  6. BISOPROLOL [Concomitant]
     Route: 048
  7. BISOPROLOL [Concomitant]
     Route: 065
  8. BISOPROLOL [Concomitant]
     Route: 048
  9. FLOVENT [Concomitant]
     Dosage: 1 PUFF
     Route: 049
  10. SINGULAIR [Concomitant]
     Route: 048
  11. FOLIC ACID [Concomitant]
     Route: 048
  12. METHOTREXATE [Concomitant]
     Route: 058
  13. PREDNISONE [Concomitant]
     Route: 048
  14. TYLENOL [Concomitant]
     Route: 048
  15. DIOVAN [Concomitant]
  16. SOTALOL [Concomitant]
     Route: 065

REACTIONS (24)
  - Diverticulum intestinal [Unknown]
  - Heart rate increased [Unknown]
  - Diverticulitis [Not Recovered/Not Resolved]
  - Infusion related reaction [Recovered/Resolved]
  - Palpitations [Not Recovered/Not Resolved]
  - Blood glucose increased [Unknown]
  - Oropharyngeal pain [Not Recovered/Not Resolved]
  - Pyrexia [Not Recovered/Not Resolved]
  - Sinus congestion [Not Recovered/Not Resolved]
  - Endodontic procedure [Unknown]
  - Gingival inflammation [Not Recovered/Not Resolved]
  - Anxiety [Not Recovered/Not Resolved]
  - Blood pressure increased [Not Recovered/Not Resolved]
  - Weight increased [Not Recovered/Not Resolved]
  - Gingivitis [Not Recovered/Not Resolved]
  - Lung infection [Recovering/Resolving]
  - Influenza [Recovered/Resolved]
  - Dizziness [Not Recovered/Not Resolved]
  - Chills [Recovered/Resolved]
  - Diarrhoea [Recovering/Resolving]
  - Haematochezia [Not Recovered/Not Resolved]
  - Gastric disorder [Unknown]
  - Tremor [Unknown]
  - Asthenia [Unknown]
